FAERS Safety Report 7635853-7 (Version None)
Quarter: 2011Q3

REPORT INFORMATION
  Report Type: 
  Country: None (occurrence: None)
  Receive Date: 20110726
  Receipt Date: 20110715
  Transmission Date: 20111222
  Serious: Yes (Other)
  Sender: FDA-Public Use
  Company Number: US-JNJFOC-20110707201

PATIENT
  Sex: Male
  Weight: 88.45 kg

DRUGS (1)
  1. REMICADE [Suspect]
     Indication: COLITIS ULCERATIVE
     Dosage: PATIENT RECEIVED THE 3 INITIAL DOSES
     Route: 042
     Dates: start: 20110501, end: 20110706

REACTIONS (8)
  - VISUAL IMPAIRMENT [None]
  - CHEST DISCOMFORT [None]
  - ARTHRALGIA [None]
  - FACIAL PAIN [None]
  - DYSPNOEA [None]
  - DIZZINESS [None]
  - BONE PAIN [None]
  - PYREXIA [None]
